FAERS Safety Report 9611594 (Version 1)
Quarter: 2013Q4

REPORT INFORMATION
  Report Type: Spontaneous
  Country: BR (occurrence: BR)
  Receive Date: 20131010
  Receipt Date: 20131010
  Transmission Date: 20140711
  Serious: Yes (Hospitalization, Other)
  Sender: FDA-Public Use
  Company Number: BR-ASTRAZENECA-2013SE74262

PATIENT
  Age: 71 Year
  Sex: Male

DRUGS (2)
  1. SELOZOK [Suspect]
     Indication: ISCHAEMIC HEART DISEASE PROPHYLAXIS
     Route: 048
     Dates: start: 2005
  2. ASPIRIN [Concomitant]
     Indication: ANTICOAGULANT THERAPY

REACTIONS (3)
  - Aortic dissection [Recovered/Resolved]
  - Cataract [Recovered/Resolved]
  - Neoplasm prostate [Not Recovered/Not Resolved]
